FAERS Safety Report 10776219 (Version 2)
Quarter: 2015Q1

REPORT INFORMATION
  Report Type: Spontaneous
  Country: JP (occurrence: JP)
  Receive Date: 20150209
  Receipt Date: 20150304
  Transmission Date: 20150721
  Serious: Yes (Other)
  Sender: FDA-Public Use
  Company Number: JP-PFIZER INC-2015049123

PATIENT
  Age: 81 Year
  Sex: Male

DRUGS (1)
  1. ZYVOX [Suspect]
     Active Substance: LINEZOLID
     Indication: STAPHYLOCOCCAL INFECTION
     Dosage: 1200 MG, DAILY
     Route: 041
     Dates: start: 20141219, end: 20150115

REACTIONS (2)
  - Interstitial lung disease [Unknown]
  - Sepsis [Unknown]

NARRATIVE: CASE EVENT DATE: 20150115
